FAERS Safety Report 8856144 (Version 1)
Quarter: 2012Q4

REPORT INFORMATION
  Report Type: Spontaneous
  Country: US (occurrence: None)
  Receive Date: 20121023
  Receipt Date: 20121023
  Transmission Date: 20130627
  Serious: Yes (Hospitalization)
  Sender: FDA-Public Use
  Company Number: None

PATIENT
  Age: 43 Year
  Sex: Female
  Weight: 106.6 kg

DRUGS (1)
  1. TAPAZOLE [Suspect]
     Route: 048
     Dates: start: 20120805, end: 20120819

REACTIONS (1)
  - Hepatotoxicity [None]
